FAERS Safety Report 6992202 (Version 4)
Quarter: 2013Q1

REPORT INFORMATION
  Report Type: Spontaneous
  Country: CA (occurrence: CA)
  Receive Date: 20090512
  Receipt Date: 20130129
  Transmission Date: 20140127
  Serious: Yes (Other)
  Sender: FDA-Public Use
  Company Number: CA-RB-011179-09

PATIENT
  Age: 29 Year
  Sex: Female

DRUGS (3)
  1. SUBUTEX [Suspect]
     Indication: DRUG DEPENDENCE
     Route: 060
     Dates: start: 20090313
  2. SUBOXONE [Suspect]
     Indication: DRUG DEPENDENCE
     Dosage: FREQUENCY UNKNOWN
     Route: 060
     Dates: start: 200810
  3. EFFEXOR [Suspect]
     Indication: PRODUCT USED FOR UNKNOWN INDICATION
     Dosage: DOSING INFORMATION UNKNOWN
     Route: 065
     Dates: start: 200704

REACTIONS (3)
  - Foetal cystic hygroma [Recovered/Resolved]
  - Abortion induced [Recovered/Resolved]
  - Exposure during pregnancy [Recovered/Resolved]
